FAERS Safety Report 6414390-1 (Version None)
Quarter: 2009Q4

REPORT INFORMATION
  Report Type: 
  Country: None (occurrence: None)
  Receive Date: 20091021
  Receipt Date: 20091009
  Transmission Date: 20100525
  Serious: No
  Sender: FDA-Public Use
  Company Number: FABR-1001008

PATIENT
  Age: 38 Year
  Sex: Female
  Weight: 95 kg

DRUGS (5)
  1. FABRAZYME [Suspect]
     Indication: FABRY'S DISEASE
     Dosage: 0.5 MG/KG, Q2W, INTRAVENOUS, 1 MG/KG, Q2W, INTRAVENOUS
     Route: 042
     Dates: start: 20061204, end: 20090810
  2. FABRAZYME [Suspect]
     Indication: FABRY'S DISEASE
     Dosage: 0.5 MG/KG, Q2W, INTRAVENOUS, 1 MG/KG, Q2W, INTRAVENOUS
     Route: 042
     Dates: start: 20090810
  3. TEGRETOL (CARBAMZAEPINE) [Concomitant]
  4. RAMIPRIL [Concomitant]
  5. ASPIRIN (SALICYLAMIDE) [Concomitant]

REACTIONS (2)
  - FATIGUE [None]
  - PRODUCT QUALITY ISSUE [None]
